FAERS Safety Report 7190731-5 (Version None)
Quarter: 2010Q4

REPORT INFORMATION
  Report Type: 
  Country: None (occurrence: None)
  Receive Date: 20101213
  Receipt Date: 20101130
  Transmission Date: 20110411
  Serious: Yes (Other)
  Sender: FDA-Public Use
  Company Number: 023085

PATIENT
  Sex: Female

DRUGS (4)
  1. LACOSAMIDE [Suspect]
     Indication: COMPLEX PARTIAL SEIZURES
     Dosage: ADDED ABOUT A YEAR AND A HALF AGO
  2. LAMICTAL [Suspect]
     Indication: COMPLEX PARTIAL SEIZURES
     Dosage: ORAL, DOSAGE INCREASED ORAL
     Route: 048
     Dates: start: 20060101
  3. LAMOTRIGINE [Suspect]
     Indication: COMPLEX PARTIAL SEIZURES
     Dosage: LAMOTRIGINE (TEVA) ABOUT A YEAR AND A HALF TO TWO YEARS AGO ORAL
     Route: 048
  4. TEGRETOL [Suspect]
     Indication: COMPLEX PARTIAL SEIZURES

REACTIONS (4)
  - GRAND MAL CONVULSION [None]
  - NO THERAPEUTIC RESPONSE [None]
  - PERSONALITY CHANGE [None]
  - PRODUCT SUBSTITUTION ISSUE [None]
